FAERS Safety Report 14894987 (Version 1)
Quarter: 2018Q2

REPORT INFORMATION
  Report Type: Spontaneous
  Country: TW (occurrence: TW)
  Receive Date: 20180515
  Receipt Date: 20180515
  Transmission Date: 20180711
  Serious: Yes (Other)
  Sender: FDA-Public Use
  Company Number: TW-AMGEN-TWNSP2018064831

PATIENT
  Age: 68 Year
  Sex: Male

DRUGS (6)
  1. POULICAN [Concomitant]
     Dosage: 1 DF, BID
  2. ENBREL [Suspect]
     Active Substance: ETANERCEPT
     Indication: PSORIATIC ARTHROPATHY
     Dosage: 25 MG, CYCLICAL (Q5D)
     Route: 058
     Dates: start: 20141229, end: 20180424
  3. NORVASC [Concomitant]
     Active Substance: AMLODIPINE BESYLATE
     Dosage: 0.5 DF, QD (5MG 1/2# QD)
  4. AMEPIRIDE [Concomitant]
     Dosage: 2 MG, QD
  5. GLUCOMINE [Concomitant]
     Dosage: 500 MG, BID
  6. ALLOPURINOL. [Concomitant]
     Active Substance: ALLOPURINOL
     Dosage: 100 MG, QD

REACTIONS (2)
  - Hepatic neoplasm [Unknown]
  - Product use issue [Unknown]

NARRATIVE: CASE EVENT DATE: 20141229
